FAERS Safety Report 9211082 (Version 1)
Quarter: 2013Q2

REPORT INFORMATION
  Report Type: Report from Study
  Country: US (occurrence: US)
  Receive Date: 20130404
  Receipt Date: 20130404
  Transmission Date: 20140414
  Serious: Yes (Hospitalization)
  Sender: FDA-Public Use
  Company Number: US-AMGEN-US298863

PATIENT
  Age: 68 Year
  Sex: Male
  Weight: 71.4 kg

DRUGS (22)
  1. DENOSUMAB [Suspect]
     Indication: METASTASES TO BONE
     Dosage: UNK UNK, QMO
     Route: 058
     Dates: start: 20070111, end: 20080724
  2. LISINOPRIL [Suspect]
     Dosage: 40 MG, UNK
     Dates: start: 20071015, end: 200807
  3. AMLODIPINE BESYLATE/ATORVASTATIN CALCIUM [Concomitant]
     Dosage: 10 MG, UNK
  4. ARTIFICIAL TEARS [Concomitant]
     Dosage: UNK UNK, UNK
  5. DIPHENHYDRAMINE HYDROCHLORIDE [Concomitant]
     Dosage: 25 MG, UNK
  6. FLUNISOLIDE [Concomitant]
     Dosage: .025 %, UNK
     Route: 055
  7. IBUPROFEN [Concomitant]
     Dosage: 800 MG, UNK
  8. LACTOBACILLUS ACIDOPHILUS [Concomitant]
  9. LORATADINE [Concomitant]
     Dosage: 10 MG, UNK
  10. LORAZEPAM [Concomitant]
     Dosage: .5 MG, UNK
  11. MECLIZINE HYDROCHLORIDE [Concomitant]
     Dosage: 25 MG, UNK
  12. MEGESTROL ACETATE [Concomitant]
     Dosage: 40 MG, UNK
  13. METOPROLOL [Concomitant]
     Dosage: 200 MG, UNK
  14. NICOTINIC ACID [Concomitant]
     Dosage: 1000 MG, UNK
  15. OMEPRAZOLE [Concomitant]
     Dosage: 20 MG, UNK
  16. PSEUDOEPHEDRINE HYDROCHLORIDE [Concomitant]
     Dosage: 30 MG, UNK
  17. GOSERELIN [Concomitant]
  18. DIETHYLSTILBESTROL [Concomitant]
     Dosage: UNK UNK, UNK
     Dates: start: 200807
  19. ASPIRIN [Concomitant]
     Dosage: 81 MG, QD
  20. AZITHROMYCIN [Concomitant]
     Dosage: 250 MG, UNK
  21. SERTRALINE HYDROCHLORIDE [Concomitant]
     Dosage: 50 MG, QD
  22. PHENYLEPHRINE [Concomitant]
     Dosage: UNK UNK, UNK

REACTIONS (1)
  - Angioedema [Recovered/Resolved]
